FAERS Safety Report 18746186 (Version 1)
Quarter: 2021Q1

REPORT INFORMATION
  Report Type: Spontaneous
  Country: US (occurrence: US)
  Receive Date: 20210115
  Receipt Date: 20210115
  Transmission Date: 20210419
  Serious: Yes (Hospitalization)
  Sender: FDA-Public Use
  Company Number: None

PATIENT
  Age: 48 Year
  Sex: Female
  Weight: 62.7 kg

DRUGS (2)
  1. BEVACIZUMAB (RHUMAB VEGF) [Suspect]
     Active Substance: BEVACIZUMAB
     Dates: end: 20201223
  2. DOXIL [Suspect]
     Active Substance: DOXORUBICIN HYDROCHLORIDE
     Dates: end: 20201209

REACTIONS (6)
  - Metastases to central nervous system [None]
  - Ovarian cancer [None]
  - Vomiting [None]
  - Central nervous system lesion [None]
  - Malignant neoplasm progression [None]
  - Nausea [None]

NARRATIVE: CASE EVENT DATE: 20210106
